FAERS Safety Report 12468143 (Version 1)
Quarter: 2016Q2

REPORT INFORMATION
  Report Type: Report from Study
  Country: PE (occurrence: PE)
  Receive Date: 20160615
  Receipt Date: 20160615
  Transmission Date: 20160815
  Serious: Yes (Hospitalization, Other)
  Sender: FDA-Public Use
  Company Number: PE-009507513-1606PER006652

PATIENT
  Age: 61 Year
  Sex: Female

DRUGS (1)
  1. JANUVIA [Suspect]
     Active Substance: SITAGLIPTIN PHOSPHATE
     Indication: TYPE 1 DIABETES MELLITUS
     Dosage: 50 MG (100 MG-1/2 TABLET PER DAY), QD
     Route: 048
     Dates: start: 201601, end: 201605

REACTIONS (6)
  - Product use issue [Unknown]
  - Underdose [Unknown]
  - Cardiac disorder [Unknown]
  - Renal failure [Unknown]
  - Lung disorder [Unknown]
  - Wrong technique in product usage process [Unknown]

NARRATIVE: CASE EVENT DATE: 2016
